FAERS Safety Report 11023418 (Version 2)
Quarter: 2015Q2

REPORT INFORMATION
  Report Type: Spontaneous
  Country: US (occurrence: US)
  Receive Date: 20150413
  Receipt Date: 20150414
  Transmission Date: 20150821
  Serious: No
  Sender: FDA-Public Use
  Company Number: US-PFIZER INC-2015121111

PATIENT
  Sex: Female

DRUGS (1)
  1. HEMABATE [Suspect]
     Active Substance: CARBOPROST TROMETHAMINE
     Indication: POSTPARTUM HAEMORRHAGE

REACTIONS (1)
  - Injection site bruising [Unknown]

NARRATIVE: CASE EVENT DATE: 2015
